FAERS Safety Report 8078972-6 (Version None)
Quarter: 2012Q1

REPORT INFORMATION
  Report Type: 
  Country: None (occurrence: None)
  Receive Date: 20120128
  Receipt Date: 20110621
  Transmission Date: 20120608
  Serious: No
  Sender: FDA-Public Use
  Company Number: US-ABBOTT-11P-163-0734223-00

PATIENT
  Age: 49 Year
  Sex: Male

DRUGS (11)
  1. HUMIRA [Suspect]
     Indication: RHEUMATOID ARTHRITIS
     Dates: start: 20110516
  2. FOLIC ACID [Concomitant]
     Indication: PRODUCT USED FOR UNKNOWN INDICATION
     Dosage: DAILY IN CONJUNCTION TO METHOTREXATE
  3. CYMBALTA [Concomitant]
     Indication: PRODUCT USED FOR UNKNOWN INDICATION
     Dosage: EVERY 2-3 DAYS AFTER PROSTATE SURGERY
  4. METHOTREXATE [Concomitant]
     Indication: RHEUMATOID ARTHRITIS
     Dosage: WEEKLY
  5. SINGULAIR [Concomitant]
     Indication: SEASONAL ALLERGY
  6. SINGULAIR [Concomitant]
     Indication: ASTHMA
  7. DIASTOLIC [Concomitant]
     Indication: HYPERTENSION
     Dosage: DAILY
  8. ADVAIR DISKUS 100/50 [Concomitant]
     Indication: ASTHMA
  9. ASPIRIN [Concomitant]
     Indication: THROMBOSIS PROPHYLAXIS
     Dosage: DAILY
  10. PREDNISONE TAB [Concomitant]
     Indication: RHEUMATOID ARTHRITIS
     Dosage: DAILY
  11. VESICARE [Concomitant]
     Indication: PROSTATIC OPERATION
     Dosage: DAILY

REACTIONS (1)
  - DYSURIA [None]
